FAERS Safety Report 10311347 (Version 1)
Quarter: 2014Q3

REPORT INFORMATION
  Report Type: Spontaneous
  Country: US (occurrence: None)
  Receive Date: 20140716
  Receipt Date: 20140716
  Transmission Date: 20150326
  Serious: Yes (Other)
  Sender: FDA-Public Use
  Company Number: None

PATIENT
  Sex: Female

DRUGS (1)
  1. TOPIRAMATE 50 MG [Suspect]
     Active Substance: TOPIRAMATE
     Indication: MENIERE^S DISEASE
     Dosage: 2  TWICE DAILY TAKEN BY MOUTH
     Route: 048
     Dates: start: 201112, end: 201203

REACTIONS (2)
  - Burning sensation [None]
  - Paraesthesia [None]
